FAERS Safety Report 8471425-2 (Version None)
Quarter: 2012Q2

REPORT INFORMATION
  Report Type: 
  Country: None (occurrence: None)
  Receive Date: 20120627
  Receipt Date: 20120620
  Transmission Date: 20120825
  Serious: Yes (Hospitalization, Disabling, Other)
  Sender: FDA-Public Use
  Company Number: PHFR2012GB002405

PATIENT
  Sex: Female

DRUGS (2)
  1. ARIPIPRAZOLE [Concomitant]
     Indication: PSYCHOTIC DISORDER
     Route: 048
     Dates: start: 20120416, end: 20120426
  2. CLOZARIL [Suspect]
     Indication: SCHIZOAFFECTIVE DISORDER
     Dosage: 50 MG, BID
     Route: 048
     Dates: start: 20120315, end: 20120416

REACTIONS (12)
  - HYPERHIDROSIS [None]
  - SOMNOLENCE [None]
  - APHASIA [None]
  - PARKINSONISM [None]
  - CONFUSIONAL STATE [None]
  - BLOOD CREATINE PHOSPHOKINASE INCREASED [None]
  - NEUROLEPTIC MALIGNANT SYNDROME [None]
  - TREMOR [None]
  - INFLAMMATORY MARKER INCREASED [None]
  - SEDATION [None]
  - SALIVARY HYPERSECRETION [None]
  - DRUG INTOLERANCE [None]
